FAERS Safety Report 9050460 (Version 4)
Quarter: 2014Q2

REPORT INFORMATION
  Report Type: Report from Study
  Country: SK (occurrence: SK)
  Receive Date: 20130205
  Receipt Date: 20140528
  Transmission Date: 20141212
  Serious: Yes (Hospitalization, Other)
  Sender: FDA-Public Use
  Company Number: SK-ACTELION-A-CH2012-65363

PATIENT
  Age: 29 Year
  Sex: Female
  Weight: 36 kg

DRUGS (6)
  1. ZAVESCA [Suspect]
     Indication: NIEMANN-PICK DISEASE
     Dosage: 200 MG, TID
     Route: 048
     Dates: start: 20080904
  2. ORFIRIL [Concomitant]
     Dosage: UNK
     Dates: start: 2007
  3. GABAPENTIN [Concomitant]
  4. SERLIFT [Concomitant]
     Dosage: UNK
     Dates: start: 2008
  5. RIVOTRIL [Concomitant]
     Dosage: UNK
     Dates: start: 2009
  6. TOPAMAX [Concomitant]
     Dosage: UNK
     Dates: start: 20110406

REACTIONS (10)
  - Weight decreased [Recovered/Resolved]
  - Convulsion [Unknown]
  - Respiratory tract infection [Not Recovered/Not Resolved]
  - Neuropathy peripheral [Unknown]
  - Tremor [Unknown]
  - Pneumonia [Not Recovered/Not Resolved]
  - Condition aggravated [Recovering/Resolving]
  - Treatment noncompliance [Unknown]
  - Disturbance in attention [Unknown]
  - Motor dysfunction [Unknown]
